FAERS Safety Report 5401495-7 (Version None)
Quarter: 2007Q3

REPORT INFORMATION
  Report Type: 
  Country: None (occurrence: None)
  Receive Date: 20070731
  Receipt Date: 20061204
  Transmission Date: 20080115
  Serious: No
  Sender: FDA-Public Use
  Company Number: A0630237A

PATIENT
  Age: 42 Year
  Sex: Female

DRUGS (1)
  1. DYAZIDE [Suspect]
     Indication: URINE CALCIUM INCREASED
     Route: 048
     Dates: start: 20061128, end: 20061203

REACTIONS (3)
  - FATIGUE [None]
  - INCREASED APPETITE [None]
  - SOMNOLENCE [None]
